FAERS Safety Report 9881877 (Version 2)
Quarter: 2014Q1

REPORT INFORMATION
  Report Type: Spontaneous
  Country: CA (occurrence: CA)
  Receive Date: 20140207
  Receipt Date: 20140207
  Transmission Date: 20141002
  Serious: Yes (Life-Threatening)
  Sender: FDA-Public Use
  Company Number: CA-ABBVIE-14P-028-1195074-00

PATIENT
  Age: 55 Year
  Sex: Male

DRUGS (9)
  1. RIBAVIRIN [Suspect]
     Indication: HEPATITIS C
     Dosage: 400 MG IN MORNING AND 600 MG IN EVENING (1000 MG, 100 MG/DAY)
     Route: 048
     Dates: start: 20130914, end: 20131129
  2. RIBAVIRIN [Suspect]
     Dosage: 400 MG IN MORNING AND 600 MG IN EVENING (1000 MG, 1000 MG/DAY)
     Route: 048
     Dates: start: 20131206, end: 20140115
  3. PEGINTERFERON ALFA-2A [Suspect]
     Indication: HEPATITIS C
     Route: 058
     Dates: start: 20130913, end: 20140116
  4. PEGINTERFERON LAMBDA-1A [Suspect]
     Indication: CHRONIC HEPATITIS C
     Route: 058
     Dates: start: 20130913, end: 20140116
  5. TELAPREVIR [Suspect]
     Indication: CHRONIC HEPATITIS C
     Route: 048
     Dates: start: 20130914, end: 20131126
  6. DICLOFENAC SODIUM AND MISOPROSTOL [Concomitant]
     Indication: PRODUCT USED FOR UNKNOWN INDICATION
     Dates: start: 20130813
  7. HYDROXYZINE [Concomitant]
     Indication: PRODUCT USED FOR UNKNOWN INDICATION
     Dates: start: 20131107
  8. TICAGRELOR [Concomitant]
     Indication: PRODUCT USED FOR UNKNOWN INDICATION
  9. CEFADROXIL [Concomitant]
     Indication: PRODUCT USED FOR UNKNOWN INDICATION
     Dates: start: 20131126

REACTIONS (9)
  - Angina unstable [Recovered/Resolved]
  - Rash macular [Unknown]
  - Pruritus [Unknown]
  - Rash [Unknown]
  - Haemoglobin decreased [Unknown]
  - Apolipoprotein E abnormal [Unknown]
  - White blood cell count decreased [Unknown]
  - Lymphocyte count decreased [Unknown]
  - Platelet count decreased [Unknown]
